FAERS Safety Report 5337811-4 (Version None)
Quarter: 2007Q2

REPORT INFORMATION
  Report Type: 
  Country: None (occurrence: None)
  Receive Date: 20070309
  Receipt Date: 20060111
  Transmission Date: 20071010
  Serious: Yes (Other)
  Sender: FDA-Public Use
  Company Number: US200511001691

PATIENT
  Age: 70 Year
  Sex: Female

DRUGS (9)
  1. GEMZAR [Suspect]
     Indication: NON-SMALL CELL LUNG CANCER
     Dosage: 2 DOSES, INTRAVENOUS
     Route: 042
     Dates: start: 20051103, end: 20051117
  2. ASA TABS (ACETYLSALICYLIC ACID) [Concomitant]
  3. MULTIVITAMINS (ASCORBIC ACID, ERGOCALCIFEROL, FOLIC ACID, NICOTINAMIDE [Concomitant]
  4. ASCORBIC ACID [Concomitant]
  5. COMPAZINE [Concomitant]
  6. SENOKOT [Concomitant]
  7. PREVACID [Concomitant]
  8. POTASSIUM CHLORIDE [Concomitant]
  9. MAGNESIUM (MAGNESIUM) [Concomitant]

REACTIONS (6)
  - ALANINE AMINOTRANSFERASE INCREASED [None]
  - BLOOD UREA INCREASED [None]
  - DYSPNOEA [None]
  - PLATELET COUNT INCREASED [None]
  - PULMONARY TOXICITY [None]
  - WHITE BLOOD CELL COUNT INCREASED [None]
